FAERS Safety Report 7243319-1 (Version None)
Quarter: 2011Q1

REPORT INFORMATION
  Report Type: 
  Country: None (occurrence: None)
  Receive Date: 20110125
  Receipt Date: 20101118
  Transmission Date: 20110831
  Serious: No
  Sender: FDA-Public Use
  Company Number: US-BRISTOL-MYERS SQUIBB COMPANY-15394034

PATIENT

DRUGS (1)
  1. PLATINOL [Suspect]

REACTIONS (2)
  - MEDICATION ERROR [None]
  - DRUG DOSE OMISSION [None]
